FAERS Safety Report 24271672 (Version 1)
Quarter: 2024Q3

REPORT INFORMATION
  Report Type: Spontaneous
  Country: TR (occurrence: TR)
  Receive Date: 20240902
  Receipt Date: 20240902
  Transmission Date: 20241017
  Serious: Yes (Other)
  Sender: SANDOZ
  Company Number: TR-MLMSERVICE-20240801-PI148656-00219-3

PATIENT
  Age: 6 Year
  Sex: Male
  Weight: 26 kg

DRUGS (3)
  1. METHYLPHENIDATE HYDROCHLORIDE [Suspect]
     Active Substance: METHYLPHENIDATE HYDROCHLORIDE
     Indication: Attention deficit hyperactivity disorder
     Dosage: IR, DOSE WAS INCREASED (1ST DOSE AT 08:00?, ?2ND DOSE AT 13:00?, AND ?3RD DOSE AT 17:00?)
     Route: 065
  2. METHYLPHENIDATE HYDROCHLORIDE [Suspect]
     Active Substance: METHYLPHENIDATE HYDROCHLORIDE
     Dosage: IR
     Route: 065
  3. GUANFACINE [Concomitant]
     Active Substance: GUANFACINE
     Indication: Attention deficit hyperactivity disorder
     Dosage: ONCE A DAY, BEFORE GOING TO BED
     Route: 065

REACTIONS (7)
  - Drug withdrawal syndrome [Recovered/Resolved]
  - Dystonia [Recovered/Resolved]
  - Oromandibular dystonia [Recovered/Resolved]
  - Rebound effect [Recovered/Resolved]
  - Middle insomnia [Unknown]
  - Appetite disorder [Unknown]
  - Insomnia [Unknown]
